FAERS Safety Report 6892137-2 (Version None)
Quarter: 2010Q3

REPORT INFORMATION
  Report Type: 
  Country: None (occurrence: None)
  Receive Date: 20100731
  Receipt Date: 20080117
  Transmission Date: 20110219
  Serious: No
  Sender: FDA-Public Use
  Company Number: US-PFIZER INC-2007094107

PATIENT
  Sex: Male
  Weight: 131.54 kg

DRUGS (2)
  1. NEURONTIN [Suspect]
     Indication: INTERVERTEBRAL DISC PROTRUSION
     Route: 048
     Dates: start: 20070101
  2. DIOVANE [Concomitant]

REACTIONS (1)
  - BACK PAIN [None]
